FAERS Safety Report 14366287 (Version 1)
Quarter: 2018Q1

REPORT INFORMATION
  Report Type: Other
  Country: BR (occurrence: BR)
  Receive Date: 20180109
  Receipt Date: 20180109
  Transmission Date: 20180509
  Serious: Yes (Hospitalization, Other)
  Sender: FDA-Public Use
  Company Number: BR-ORCHID HEALTHCARE-2039704

PATIENT
  Age: 62 Year
  Sex: Female

DRUGS (1)
  1. DIVALPROEX SODIUM. [Suspect]
     Active Substance: DIVALPROEX SODIUM
     Indication: MANIA
     Route: 065
     Dates: start: 201511

REACTIONS (4)
  - Aphasia [Unknown]
  - Trismus [Recovered/Resolved]
  - Tooth fracture [Unknown]
  - Mastication disorder [Unknown]
